FAERS Safety Report 11003725 (Version 1)
Quarter: 2015Q2

REPORT INFORMATION
  Report Type: Spontaneous
  Country: US (occurrence: US)
  Receive Date: 20150409
  Receipt Date: 20150409
  Transmission Date: 20150821
  Serious: No
  Sender: FDA-Public Use
  Company Number: US-BIOGENIDEC-2015BI044565

PATIENT
  Age: 67 Year
  Sex: Female

DRUGS (6)
  1. AVONEX [Suspect]
     Active Substance: INTERFERON BETA-1A
     Indication: MULTIPLE SCLEROSIS
     Route: 030
  2. CALCIUM [Concomitant]
     Active Substance: CALCIUM
  3. GABAPENTIN. [Concomitant]
     Active Substance: GABAPENTIN
  4. ATORVASTATIN [Concomitant]
     Active Substance: ATORVASTATIN
  5. PAXIL [Concomitant]
     Active Substance: PAROXETINE HYDROCHLORIDE
  6. LISINOPRIL. [Concomitant]
     Active Substance: LISINOPRIL

REACTIONS (2)
  - Erythema [Unknown]
  - Contusion [Unknown]
